FAERS Safety Report 10286652 (Version 1)
Quarter: 2014Q3

REPORT INFORMATION
  Report Type: Spontaneous
  Country: ID (occurrence: ID)
  Receive Date: 20140709
  Receipt Date: 20140709
  Transmission Date: 20150326
  Serious: Yes (Other)
  Sender: FDA-Public Use
  Company Number: ID-SA-2014SA090607

PATIENT

DRUGS (2)
  1. IMMUNOGLOBULIN HUMAN ANTIRABIES [Suspect]
     Active Substance: HUMAN RABIES VIRUS IMMUNE GLOBULIN
     Indication: EXPOSURE VIA DIRECT CONTACT
     Route: 065
     Dates: start: 20140610, end: 20140610
  2. RABIES VACCINE [Suspect]
     Active Substance: RABIES VACCINE
     Indication: IMMUNISATION
     Route: 065
     Dates: start: 20140610, end: 20140610

REACTIONS (3)
  - Amoebic dysentery [Unknown]
  - Pyrexia [Unknown]
  - Diarrhoea [Unknown]

NARRATIVE: CASE EVENT DATE: 20140612
